FAERS Safety Report 7459875-4 (Version None)
Quarter: 2011Q2

REPORT INFORMATION
  Report Type: 
  Country: None (occurrence: None)
  Receive Date: 20110505
  Receipt Date: 20110502
  Transmission Date: 20111010
  Serious: Yes (Death)
  Sender: FDA-Public Use
  Company Number: CO-PFIZER INC-2011081446

PATIENT
  Age: 75 Year
  Sex: Female

DRUGS (8)
  1. HYDROCHLOROTHIAZIDE AND OLMESARTAN [Suspect]
     Indication: HYPERTENSION
     Dosage: OLMESARTAN MEDOXOMIL 20 MG / HYDROCHLOROTHIAZIDE 12.5 MG, 1X/DAY
     Dates: start: 20071201
  2. LIPITOR [Suspect]
     Indication: DYSLIPIDAEMIA
     Dosage: 10 MG, 1X/DAY
     Dates: start: 20071201
  3. ACETYLSALICYLIC ACID [Concomitant]
     Dosage: 100 MG, 1X/DAY
  4. FUROSEMIDE [Concomitant]
     Dosage: 30 MG, UNK
  5. METOPROLOL [Concomitant]
     Dosage: 100 MG, 1X/DAY
  6. LOSARTAN [Concomitant]
     Dosage: 50 MG, UNK
  7. NIFEDIPINE [Concomitant]
     Dosage: 30 MG, 1 TABLET, EVERY 12 HOURS
  8. OMEPRAZOL [Concomitant]
     Dosage: 20 MG, UNK

REACTIONS (1)
  - MYOCARDIAL INFARCTION [None]
